FAERS Safety Report 14020909 (Version 1)
Quarter: 2017Q3

REPORT INFORMATION
  Report Type: Spontaneous
  Country: US (occurrence: US)
  Receive Date: 20170928
  Receipt Date: 20170928
  Transmission Date: 20171128
  Serious: No
  Sender: FDA-Public Use
  Company Number: US-ROCHE-764509

PATIENT
  Age: 28 Year
  Sex: Female

DRUGS (11)
  1. CYCLOPHOSPHAMIDE. [Suspect]
     Active Substance: CYCLOPHOSPHAMIDE
     Indication: BURKITT^S LYMPHOMA
     Dosage: ON DAY 1, AND ON DAYS 2 THROUGH 5: 200 MG/M2
     Route: 042
  2. RITUXIMAB. [Suspect]
     Active Substance: RITUXIMAB
     Indication: BURKITT^S LYMPHOMA
     Dosage: ON DAYS 13, 18, 39, 42, 59, 62, AND 89
     Route: 065
  3. VINCRISTINE [Suspect]
     Active Substance: VINCRISTINE
     Indication: BURKITT^S LYMPHOMA
     Dosage: ON DAY 1
     Route: 065
  4. PREDNISONE. [Suspect]
     Active Substance: PREDNISONE
     Indication: BURKITT^S LYMPHOMA
     Dosage: ON DAYS 1 THROUGH 5
     Route: 048
  5. CYTARABINE. [Suspect]
     Active Substance: CYTARABINE
     Indication: BURKITT^S LYMPHOMA
     Dosage: ON DAYS 3, 5, 21, AND 45
     Route: 037
  6. DOXORUBICIN [Suspect]
     Active Substance: DOXORUBICIN
     Indication: BURKITT^S LYMPHOMA
     Route: 065
  7. FILGRASTIM [Suspect]
     Active Substance: FILGRASTIM
     Indication: FEBRILE NEUTROPENIA
     Dosage: AFTER EACH TREATMENT CYCLE
     Route: 065
  8. ETOPOSIDE. [Suspect]
     Active Substance: ETOPOSIDE
     Indication: BURKITT^S LYMPHOMA
     Dosage: FREQUENCY: PER DAY
     Route: 065
  9. CYTARABINE. [Suspect]
     Active Substance: CYTARABINE
     Indication: BURKITT^S LYMPHOMA
     Dosage: 3.2 G/M2 EVERY 12 HOURS, FOR 4 DOSES GIVEN ON DAYS 25 AND 26 AND AGAIN ON DAYS 70 AND 71
     Route: 042
  10. IFOSFAMIDE. [Suspect]
     Active Substance: IFOSFAMIDE
     Indication: BURKITT^S LYMPHOMA
     Dosage: FREQUENCY: PER DAY
     Route: 065
  11. MESNA. [Suspect]
     Active Substance: MESNA
     Indication: BURKITT^S LYMPHOMA
     Dosage: PER DAY, (WITH A 12-HOUR MESNA TAIL) ON DAYS 25 THROUGH 29 AND REPEATED ON DAYS 70 THROUGH 74
     Route: 042

REACTIONS (1)
  - Normal newborn [Unknown]
